FAERS Safety Report 17615548 (Version 2)
Quarter: 2020Q2

REPORT INFORMATION
  Report Type: Spontaneous
  Country: US (occurrence: US)
  Receive Date: 20200402
  Receipt Date: 20200430
  Transmission Date: 20200713
  Serious: Yes (Other)
  Sender: FDA-Public Use
  Company Number: US-PFIZER INC-2020136345

PATIENT
  Age: 76 Year
  Sex: Female
  Weight: 49.9 kg

DRUGS (3)
  1. CHANTIX [Suspect]
     Active Substance: VARENICLINE TARTRATE
     Dosage: UNK (STRENGTH: 0.5 MG + 1 MG/QUANTITY FOR 90 DAYS: 32)
  2. NICOTINE TRANSDERMAL SYSTEM [Suspect]
     Active Substance: NICOTINE
     Indication: SMOKING CESSATION THERAPY
     Dosage: 1 DF, DAILY (STARTED WITH 7 MG AND WORKED UP TO 21 MG)
     Route: 062
     Dates: end: 201612
  3. CHANTIX [Suspect]
     Active Substance: VARENICLINE TARTRATE
     Indication: SMOKING CESSATION THERAPY
     Dosage: UNK [CALLER STATES SHE STARTED LOWER FROM 7 MG AND WENT UP TO 21 MG]

REACTIONS (4)
  - Body height decreased [Unknown]
  - Limb discomfort [Unknown]
  - Cardiorenal syndrome [Unknown]
  - Memory impairment [Unknown]
